FAERS Safety Report 8231732-5 (Version None)
Quarter: 2012Q1

REPORT INFORMATION
  Report Type: 
  Country: None (occurrence: None)
  Receive Date: 20120323
  Receipt Date: 20120319
  Transmission Date: 20120608
  Serious: Yes (Hospitalization)
  Sender: FDA-Public Use
  Company Number: IT-BRISTOL-MYERS SQUIBB COMPANY-16416943

PATIENT
  Age: 75 Year
  Sex: Male

DRUGS (11)
  1. OMEPRAZOLE [Concomitant]
  2. FUROSEMIDE [Concomitant]
  3. DIGOXIN [Concomitant]
  4. SIMVASTATIN [Concomitant]
  5. POTASSIUM CHLORIDE [Concomitant]
     Dosage: 2 DOSE
  6. COUMADIN [Suspect]
     Indication: ATRIAL FIBRILLATION
     Route: 048
     Dates: start: 20080101
  7. NITROGLYCERIN [Concomitant]
  8. RAMIPRIL [Concomitant]
  9. METOPROLOL SUCCINATE [Concomitant]
  10. ASPIRIN [Suspect]
     Indication: ANTICOAGULANT THERAPY
     Route: 048
     Dates: start: 20120101
  11. ATENOLOL AND CHLORTHALIDONE [Suspect]
     Indication: ANTICOAGULANT THERAPY
     Route: 048
     Dates: start: 20120101

REACTIONS (3)
  - ANAEMIA [None]
  - CARDIAC FAILURE [None]
  - EPISTAXIS [None]
